FAERS Safety Report 6433051-6 (Version None)
Quarter: 2009Q4

REPORT INFORMATION
  Report Type: 
  Country: None (occurrence: None)
  Receive Date: 20091109
  Receipt Date: 20091028
  Transmission Date: 20100525
  Serious: Yes (Other)
  Sender: FDA-Public Use
  Company Number: FR-ELI_LILLY_AND_COMPANY-FR200910007137

PATIENT
  Age: 47 Year
  Sex: Female

DRUGS (4)
  1. CYMBALTA [Suspect]
     Indication: DEPRESSION
     Dosage: 90 MG, DAILY (1/D)
     Route: 048
     Dates: start: 20090801
  2. IXPRIM [Concomitant]
     Dosage: UNK, UNKNOWN
     Route: 048
  3. MYOLASTAN [Concomitant]
     Dosage: UNK, UNKNOWN
     Route: 048
  4. ANAFRANIL [Concomitant]
     Dosage: UNK, UNKNOWN
     Route: 048

REACTIONS (1)
  - COLITIS COLLAGENOUS [None]
